FAERS Safety Report 9754590 (Version 2)
Quarter: 2013Q4

REPORT INFORMATION
  Report Type: Spontaneous
  Country: US (occurrence: US)
  Receive Date: 20131213
  Receipt Date: 20131213
  Transmission Date: 20140711
  Serious: Yes (Disabling, Other)
  Sender: FDA-Public Use
  Company Number: US-GE HEALTHCARE MEDICAL DIAGNOSTICS-OSCN-PR-0808S-0481

PATIENT
  Age: 56 Year
  Sex: Female

DRUGS (9)
  1. OMNISCAN [Suspect]
     Indication: PRODUCT USED FOR UNKNOWN INDICATION
     Route: 042
     Dates: start: 20050623, end: 20050623
  2. OMNISCAN [Suspect]
     Route: 042
     Dates: start: 20050616, end: 20050616
  3. OMNISCAN [Suspect]
     Route: 042
     Dates: start: 20050623, end: 20050623
  4. OMNISCAN [Suspect]
     Route: 042
     Dates: start: 20050802, end: 20050802
  5. OMNISCAN [Suspect]
     Route: 042
     Dates: start: 20050805, end: 20050805
  6. GADOLINIUM (UNSPECIFIED) [Suspect]
     Indication: PRODUCT USED FOR UNKNOWN INDICATION
     Dates: start: 20021119, end: 20021119
  7. GADOLINIUM (UNSPECIFIED) [Suspect]
     Dates: start: 20040623, end: 20040623
  8. COLCHICINE [Concomitant]
  9. ALLOPURINOL [Concomitant]

REACTIONS (2)
  - Nephrogenic systemic fibrosis [Not Recovered/Not Resolved]
  - Renal failure acute [Unknown]
